FAERS Safety Report 8175547-5 (Version None)
Quarter: 2012Q1

REPORT INFORMATION
  Report Type: 
  Country: None (occurrence: None)
  Receive Date: 20120229
  Receipt Date: 20120223
  Transmission Date: 20120608
  Serious: Yes (Other)
  Sender: FDA-Public Use
  Company Number: JP-BAYER-2012-018606

PATIENT
  Age: 40 Year
  Sex: Male

DRUGS (7)
  1. ASPIRIN [Suspect]
     Indication: MYOCARDIAL INFARCTION
     Dosage: 100 MG, QD
     Route: 048
     Dates: start: 20120202
  2. LANSOPRAZOLE [Suspect]
     Dosage: UNK
     Dates: start: 20120202, end: 20120221
  3. SIGMART [Suspect]
     Dosage: UNK
     Dates: start: 20120202, end: 20120221
  4. LIPITOR [Suspect]
     Dosage: UNK
     Route: 048
     Dates: start: 20120202, end: 20120221
  5. CANDESARTAN CILEXETIL [Suspect]
     Dosage: UNK
     Route: 048
     Dates: start: 20120202, end: 20120221
  6. PLAVIX [Suspect]
     Dosage: UNK
     Route: 048
     Dates: start: 20120202, end: 20120221
  7. CARVEDILOL [Suspect]
     Dosage: UNK
     Route: 048
     Dates: start: 20120205, end: 20120221

REACTIONS (2)
  - RASH PAPULAR [None]
  - TOXIC SKIN ERUPTION [None]
